FAERS Safety Report 11649658 (Version 1)
Quarter: 2015Q4

REPORT INFORMATION
  Report Type: Not Available
  Country: MX (occurrence: MX)
  Receive Date: 20151021
  Receipt Date: 20151021
  Transmission Date: 20160304
  Serious: Yes (Death, Congenital Anomaly)
  Sender: FDA-Public Use
  Company Number: MX-ANIPHARMA-2015-MX-000001

PATIENT
  Age: 3 Month
  Sex: Male

DRUGS (2)
  1. ALCOHOLIC BEVERAGE ORAL LIQUID [Suspect]
     Active Substance: ALCOHOL
  2. AMITRIPTYLINE (NON-SPECIFIC) [Suspect]
     Active Substance: AMITRIPTYLINE
     Route: 015

REACTIONS (20)
  - Death [Not Recovered/Not Resolved]
  - Hydrothorax [None]
  - Syndactyly [None]
  - Talipes [None]
  - Premature baby [None]
  - Systemic inflammatory response syndrome [None]
  - Congenital eyelid malformation [None]
  - Teratogenicity [Not Recovered/Not Resolved]
  - Caesarean section [None]
  - Neonatal respiratory failure [None]
  - Diarrhoea haemorrhagic [None]
  - Long QT syndrome [Not Recovered/Not Resolved]
  - Haemangioma [None]
  - Ventricular tachycardia [None]
  - Heart disease congenital [Not Recovered/Not Resolved]
  - Hydrocele [None]
  - Rib hypoplasia [None]
  - Ascites [None]
  - Ventricular fibrillation [None]
  - Maternal drugs affecting foetus [None]
